FAERS Safety Report 5227684-2 (Version None)
Quarter: 2007Q1

REPORT INFORMATION
  Report Type: 
  Country: None (occurrence: None)
  Receive Date: 20070202
  Receipt Date: 20070123
  Transmission Date: 20070707
  Serious: Yes (Death)
  Sender: FDA-Public Use
  Company Number: US-ABBOTT-06P-163-0344907-00

PATIENT
  Sex: Male

DRUGS (13)
  1. VICODIN [Suspect]
     Indication: ANALGESIC EFFECT
     Dates: start: 20031001
  2. TALWIN NX [Suspect]
     Indication: ANALGESIC EFFECT
     Dates: start: 20031001
  3. ZOLPIDEM TARTRATE [Suspect]
     Indication: ANALGESIC EFFECT
     Dates: start: 20031001, end: 20040920
  4. LORCET-HD [Suspect]
     Indication: ANALGESIC EFFECT
     Dates: start: 20031001
  5. LORTAB [Suspect]
     Indication: ANALGESIC EFFECT
     Dates: start: 20031001
  6. NORCO [Suspect]
     Indication: ANALGESIC EFFECT
     Dates: start: 20031001
  7. TEMAZEPAM [Suspect]
     Indication: ANALGESIC EFFECT
     Dates: start: 20031001
  8. FLURAZEPAM HCL [Suspect]
     Indication: ANALGESIC EFFECT
     Dates: start: 20031001
  9. RESTORIL [Suspect]
     Indication: ANALGESIC EFFECT
     Dates: start: 20031001
  10. LIDODERM [Suspect]
     Indication: ANALGESIC EFFECT
     Dates: start: 20031001
  11. LIDOPAIN [Suspect]
     Indication: ANALGESIC EFFECT
     Dates: start: 20031001
  12. ZONISAMIDE [Concomitant]
     Indication: DRUG USE FOR UNKNOWN INDICATION
     Dates: end: 20040920
  13. ^PROPONAPAT^ [Concomitant]
     Indication: DRUG USE FOR UNKNOWN INDICATION
     Dates: end: 20040920

REACTIONS (17)
  - ABNORMAL DREAMS [None]
  - AMNESIA [None]
  - BRADYCARDIA [None]
  - COMPLETED SUICIDE [None]
  - CONFUSIONAL STATE [None]
  - DEPRESSION [None]
  - EMOTIONAL DISTRESS [None]
  - GUN SHOT WOUND [None]
  - HALLUCINATION [None]
  - HYPOTONIA [None]
  - NERVOUSNESS [None]
  - PULSE ABSENT [None]
  - PUPIL FIXED [None]
  - SELF INJURIOUS BEHAVIOUR [None]
  - SUICIDAL IDEATION [None]
  - UNRESPONSIVE TO STIMULI [None]
  - VISUAL DISTURBANCE [None]
